FAERS Safety Report 17726204 (Version 2)
Quarter: 2020Q4

REPORT INFORMATION
  Report Type: Report from Study
  Country: None (occurrence: US)
  Receive Date: 20200429
  Receipt Date: 20201030
  Transmission Date: 20210113
  Serious: Yes (Hospitalization, Other)
  Sender: FDA-Public Use
  Company Number: US-ABBVIE-20K-163-3381925-00

PATIENT
  Sex: Female

DRUGS (1)
  1. HUMIRA [Suspect]
     Active Substance: ADALIMUMAB
     Indication: CROHN^S DISEASE
     Route: 058

REACTIONS (12)
  - Arthralgia [Not Recovered/Not Resolved]
  - Mobility decreased [Unknown]
  - Dry skin [Recovered/Resolved]
  - Pain [Not Recovered/Not Resolved]
  - Feeling abnormal [Unknown]
  - White blood cell count decreased [Unknown]
  - Back disorder [Unknown]
  - Malaise [Unknown]
  - COVID-19 [Unknown]
  - Respiratory syncytial virus infection [Unknown]
  - Vertigo [Unknown]
  - Pain [Unknown]

NARRATIVE: CASE EVENT DATE: 2020
